FAERS Safety Report 9642509 (Version 1)
Quarter: 2013Q4

REPORT INFORMATION
  Report Type: Report from Study
  Country: US (occurrence: US)
  Receive Date: 20131024
  Receipt Date: 20131024
  Transmission Date: 20140711
  Serious: Yes (Other)
  Sender: FDA-Public Use
  Company Number: US-ROCHE-1292306

PATIENT
  Sex: Female

DRUGS (3)
  1. LUCENTIS [Suspect]
     Indication: RETINAL ARTERY OCCLUSION
     Route: 065
  2. LUCENTIS [Suspect]
     Indication: GLAUCOMA
  3. LUCENTIS [Suspect]
     Indication: RETINAL VASCULAR DISORDER

REACTIONS (3)
  - Blindness unilateral [Unknown]
  - Malaise [Unknown]
  - Cerebrovascular accident [Unknown]
